FAERS Safety Report 7036355 (Version 6)
Quarter: 2018Q3

REPORT INFORMATION
  Report Type: Report from Study
  Country: JP (occurrence: JP)
  Receive Date: 20090629
  Receipt Date: 20180903
  Transmission Date: 20181010
  Serious: Yes (Other)
  Sender: FDA-Public Use
  Company Number: PHHY2009JP24419

PATIENT
  Age: 76 Year
  Sex: Female

DRUGS (8)
  1. TASIGNA [Suspect]
     Active Substance: NILOTINIB
     Dosage: 200 MG, QD
     Route: 048
     Dates: start: 20090904, end: 20100326
  2. MEXITIL [Concomitant]
     Active Substance: MEXILETINE HYDROCHLORIDE
     Dosage: 200 MG
  3. LIPOVAS ^BANYU^ [Concomitant]
     Dosage: 5 MG
  4. LASIX [Concomitant]
     Active Substance: FUROSEMIDE
     Dosage: 20 MG
  5. WARFARIN POTASSIUM [Concomitant]
     Active Substance: WARFARIN POTASSIUM
     Dosage: 1 MG
  6. RIZE [Concomitant]
     Active Substance: CLOTIAZEPAM
     Dosage: 10 MG
  7. TASIGNA [Suspect]
     Active Substance: NILOTINIB
     Indication: CHRONIC MYELOID LEUKAEMIA
     Dosage: 400 MG, QD
     Route: 048
     Dates: start: 20090511, end: 20090605
  8. DIGOSIN [Concomitant]
     Active Substance: DIGOXIN
     Dosage: 0.125 MG

REACTIONS (12)
  - White blood cell count decreased [Recovered/Resolved]
  - Abdominal pain upper [Recovered/Resolved]
  - Pruritus [Unknown]
  - Platelet count decreased [Recovered/Resolved]
  - Lipase increased [Recovered/Resolved]
  - Eczema [Recovered/Resolved]
  - Blood uric acid increased [Recovered/Resolved]
  - Alanine aminotransferase increased [Recovered/Resolved]
  - Blood potassium decreased [Recovered/Resolved]
  - Thrombocytopenia [Recovered/Resolved]
  - Aspartate aminotransferase increased [Recovered/Resolved]
  - Blood lactate dehydrogenase increased [Not Recovered/Not Resolved]

NARRATIVE: CASE EVENT DATE: 200905
